FAERS Safety Report 13145796 (Version 2)
Quarter: 2017Q1

REPORT INFORMATION
  Report Type: Spontaneous
  Country: IT (occurrence: IT)
  Receive Date: 20170124
  Receipt Date: 20170309
  Transmission Date: 20170428
  Serious: Yes (Hospitalization, Other)
  Sender: FDA-Public Use
  Company Number: IT-IMPAX LABORATORIES, INC-2016-IPXL-02520

PATIENT
  Age: 38 Month
  Sex: Male

DRUGS (1)
  1. LAMOTRIGINE ODT [Suspect]
     Active Substance: LAMOTRIGINE
     Indication: PRODUCT USED FOR UNKNOWN INDICATION
     Dosage: UNK
     Route: 065

REACTIONS (13)
  - Accidental exposure to product by child [Unknown]
  - Thirst [Recovered/Resolved]
  - Hyperkinesia [Recovered/Resolved]
  - Ataxia [Recovered/Resolved]
  - Accidental poisoning [Recovered/Resolved]
  - Agitation [Recovered/Resolved]
  - Hyperhidrosis [Recovered/Resolved]
  - Bundle branch block right [Recovered/Resolved]
  - Sinus tachycardia [Recovered/Resolved]
  - Hyperphagia [Not Recovered/Not Resolved]
  - Malaise [Recovered/Resolved]
  - Status epilepticus [Recovered/Resolved]
  - Oculogyric crisis [Recovered/Resolved]
